FAERS Safety Report 19900970 (Version 1)
Quarter: 2021Q3

REPORT INFORMATION
  Report Type: Spontaneous
  Country: GB (occurrence: GB)
  Receive Date: 20210929
  Receipt Date: 20210929
  Transmission Date: 20211014
  Serious: Yes (Life-Threatening)
  Sender: FDA-Public Use
  Company Number: GB-TEVA-2021-GB-1957679

PATIENT
  Age: 78 Year
  Sex: Male
  Weight: 73 kg

DRUGS (15)
  1. AET PIPERACILLIN AND TAZOBACTAM [Concomitant]
     Indication: ILL-DEFINED DISORDER
  2. FERROUS FUMARATE [Concomitant]
     Active Substance: FERROUS FUMARATE
     Indication: ILL-DEFINED DISORDER
  3. FUROSEMIDE. [Concomitant]
     Active Substance: FUROSEMIDE
     Indication: ILL-DEFINED DISORDER
  4. TIOTROPIUM [Concomitant]
     Active Substance: TIOTROPIUM
     Indication: ILL-DEFINED DISORDER
  5. PREDNISOLONE. [Suspect]
     Active Substance: PREDNISOLONE
     Indication: INFECTIVE EXACERBATION OF CHRONIC OBSTRUCTIVE AIRWAYS DISEASE
     Dosage: 30MG
     Route: 048
  6. FOSTAIR [Concomitant]
     Active Substance: BECLOMETHASONE\FORMOTEROL
     Indication: ILL-DEFINED DISORDER
  7. SALBUTAMOL [Concomitant]
     Active Substance: ALBUTEROL
     Indication: ILL-DEFINED DISORDER
  8. CYCLIZINE [Concomitant]
     Active Substance: CYCLIZINE
     Indication: ILL-DEFINED DISORDER
  9. OMEPRAZOLE. [Concomitant]
     Active Substance: OMEPRAZOLE
     Indication: ILL-DEFINED DISORDER
  10. FLUCONAZOLE. [Concomitant]
     Active Substance: FLUCONAZOLE
     Indication: ILL-DEFINED DISORDER
  11. MOMETASONE FUROATE. [Concomitant]
     Active Substance: MOMETASONE FUROATE
     Indication: ILL-DEFINED DISORDER
  12. NYSTATIN. [Concomitant]
     Active Substance: NYSTATIN
     Indication: ILL-DEFINED DISORDER
  13. SODIUM CROMOGLICATE [Concomitant]
     Active Substance: CROMOLYN SODIUM
     Indication: ILL-DEFINED DISORDER
  14. PREGABALIN. [Concomitant]
     Active Substance: PREGABALIN
     Indication: ILL-DEFINED DISORDER
  15. CETIRIZINE [Concomitant]
     Active Substance: CETIRIZINE HYDROCHLORIDE
     Indication: ILL-DEFINED DISORDER

REACTIONS (1)
  - Gastrointestinal haemorrhage [Not Recovered/Not Resolved]

NARRATIVE: CASE EVENT DATE: 20210916
